FAERS Safety Report 9719878 (Version 2)
Quarter: 2013Q4

REPORT INFORMATION
  Report Type: Report from Study
  Country: CA (occurrence: CA)
  Receive Date: 20131128
  Receipt Date: 20131213
  Transmission Date: 20140711
  Serious: Yes (Other)
  Sender: FDA-Public Use
  Company Number: CA-JNJFOC-20131114391

PATIENT
  Age: 76 Year
  Sex: Male
  Weight: 116.1 kg

DRUGS (16)
  1. REMICADE [Suspect]
     Indication: COLITIS ULCERATIVE
     Dosage: DOSING FREQUENCY: 0-2-6 WEEKS, THEN ONCE IN 8 WEEKS.
     Route: 042
     Dates: start: 20131008
  2. PREDNISONE [Concomitant]
     Route: 065
  3. BISOPROLOL FUMARATE [Concomitant]
     Route: 065
  4. CALCIUM [Concomitant]
     Route: 065
  5. RAMIPRIL [Concomitant]
     Route: 065
  6. ASA [Concomitant]
     Route: 065
  7. LANTUS INSULIN [Concomitant]
     Route: 065
  8. PENTOXIFYLLINE [Concomitant]
     Route: 065
  9. HUMALOG INSULIN [Concomitant]
     Route: 065
  10. NITRO [Concomitant]
     Route: 065
  11. PLAVIX [Concomitant]
     Route: 065
  12. IRON [Concomitant]
     Route: 065
  13. DILTIAZEM [Concomitant]
     Route: 065
  14. ONGLYZA [Concomitant]
     Route: 065
  15. TECTA [Concomitant]
     Route: 065
  16. HYDRALAZINE [Concomitant]
     Route: 065

REACTIONS (4)
  - Stent placement [Recovered/Resolved]
  - Dyspnoea [Recovered/Resolved]
  - Malaise [Recovered/Resolved]
  - Asthenia [Recovered/Resolved]
